FAERS Safety Report 8808712 (Version 1)
Quarter: 2012Q4

REPORT INFORMATION
  Report Type: Report from Study
  Country: US (occurrence: US)
  Receive Date: 20120926
  Receipt Date: 20120926
  Transmission Date: 20130627
  Serious: Yes (Other)
  Sender: FDA-Public Use
  Company Number: US-JNJFOC-20120908250

PATIENT
  Sex: Female
  Weight: 74.84 kg

DRUGS (1)
  1. REMICADE [Suspect]
     Indication: RHEUMATOID ARTHRITIS
     Dosage: Dose: 600 (units unspecified).

Start date: APR or MAY-2012
     Route: 042
     Dates: start: 2012

REACTIONS (3)
  - Skin lesion [Recovering/Resolving]
  - Inflammation [Recovering/Resolving]
  - Secretion discharge [Not Recovered/Not Resolved]
